FAERS Safety Report 7671211-7 (Version None)
Quarter: 2011Q3

REPORT INFORMATION
  Report Type: 
  Country: None (occurrence: None)
  Receive Date: 20110809
  Receipt Date: 20100611
  Transmission Date: 20111222
  Serious: No
  Sender: FDA-Public Use
  Company Number: US-BAYER-201026738NA

PATIENT
  Sex: Female

DRUGS (2)
  1. MIRENA [Suspect]
     Dosage: 20 ?G/D, CONT
     Route: 015
     Dates: start: 20100606
  2. ZOLOFT [Concomitant]
     Indication: DEPRESSION

REACTIONS (2)
  - ABDOMINAL PAIN LOWER [None]
  - NAUSEA [None]
